FAERS Safety Report 8771809 (Version 1)
Quarter: 2012Q4

REPORT INFORMATION
  Report Type: 
  Country: NG (occurrence: NG)
  Receive Date: 20120906
  Receipt Date: 20120906
  Transmission Date: 20130627
  Serious: Yes (Death)
  Sender: FDA-Public Use
  Company Number: NG-ROCHE-1116401

PATIENT
  Age: 72 Year
  Sex: Male

DRUGS (1)
  1. MIRCERA [Suspect]
     Indication: PRODUCT USED FOR UNKNOWN INDICATION
     Route: 065

REACTIONS (2)
  - No therapeutic response [Unknown]
  - Death [Fatal]
